FAERS Safety Report 25279643 (Version 1)
Quarter: 2025Q2

REPORT INFORMATION
  Report Type: Spontaneous
  Country: CA (occurrence: CA)
  Receive Date: 20250507
  Receipt Date: 20250507
  Transmission Date: 20250716
  Serious: Yes (Other)
  Sender: MYLAN
  Company Number: CA-MYLANLABS-2025M1038425

PATIENT
  Age: 84 Year
  Sex: Male
  Weight: 72 kg

DRUGS (9)
  1. LYRICA [Suspect]
     Active Substance: PREGABALIN
     Indication: Neuropathy peripheral
     Dosage: 200 MILLIGRAM, QD (1 EVERY 1 DAYS)
  2. ATORVASTATIN [Concomitant]
     Active Substance: ATORVASTATIN
  3. BISOPROLOL [Concomitant]
     Active Substance: BISOPROLOL
  4. CALTRATE [Concomitant]
     Active Substance: CALCIUM CARBONATE
  5. LASIX [Concomitant]
     Active Substance: FUROSEMIDE
  6. METFORMIN [Concomitant]
     Active Substance: METFORMIN HYDROCHLORIDE
  7. PREGABALIN [Concomitant]
     Active Substance: PREGABALIN
  8. SPIRONOLACTONE [Concomitant]
     Active Substance: SPIRONOLACTONE
  9. WARFARIN [Concomitant]
     Active Substance: WARFARIN

REACTIONS (7)
  - Cardiac failure congestive [Recovering/Resolving]
  - Dyspnoea exertional [Recovering/Resolving]
  - Hypervolaemia [Recovering/Resolving]
  - Orthopnoea [Recovering/Resolving]
  - Bradycardia [Recovering/Resolving]
  - Presyncope [Recovering/Resolving]
  - Oedema peripheral [Recovering/Resolving]
